FAERS Safety Report 12976504 (Version 3)
Quarter: 2016Q4

REPORT INFORMATION
  Report Type: Spontaneous
  Country: BE (occurrence: BE)
  Receive Date: 20161127
  Receipt Date: 20161213
  Transmission Date: 20170207
  Serious: Yes (Death)
  Sender: FDA-Public Use
  Company Number: BE-BEH-2016075545

PATIENT
  Sex: Male

DRUGS (1)
  1. RIASTAP [Suspect]
     Active Substance: FIBRINOGEN HUMAN
     Indication: ACQUIRED AFIBRINOGENAEMIA

REACTIONS (1)
  - Aneurysm [Fatal]
